FAERS Safety Report 20299245 (Version 1)
Quarter: 2022Q1

REPORT INFORMATION
  Report Type: Spontaneous
  Country: IN (occurrence: IN)
  Receive Date: 20220105
  Receipt Date: 20220105
  Transmission Date: 20220424
  Serious: Yes (Death)
  Sender: FDA-Public Use
  Company Number: IN-PFIZER INC-202101852588

PATIENT
  Age: 8 Month
  Sex: Male

DRUGS (12)
  1. MEROPENEM [Suspect]
     Active Substance: MEROPENEM
     Indication: Pneumonia
     Dosage: UNK (3 WEEKS)
  2. MEROPENEM [Suspect]
     Active Substance: MEROPENEM
     Indication: Pyrexia
  3. MEROPENEM [Suspect]
     Active Substance: MEROPENEM
     Indication: Cough
  4. AMOXICILLIN\CLAVULANIC ACID [Suspect]
     Active Substance: AMOXICILLIN\CLAVULANIC ACID
     Indication: Cough
     Dosage: UNK (1 WEEK)
     Route: 048
  5. AMOXICILLIN\CLAVULANIC ACID [Suspect]
     Active Substance: AMOXICILLIN\CLAVULANIC ACID
     Indication: Pyrexia
  6. CEFTRIAXONE [Suspect]
     Active Substance: CEFTRIAXONE
     Indication: Pyrexia
     Dosage: UNK (2WEEKS)
     Route: 042
  7. CEFTRIAXONE [Suspect]
     Active Substance: CEFTRIAXONE
     Indication: Cough
  8. AMIKACIN [Suspect]
     Active Substance: AMIKACIN
     Indication: Cough
     Dosage: UNK 2WEEKS)
     Route: 042
  9. AMIKACIN [Suspect]
     Active Substance: AMIKACIN
     Indication: Pyrexia
  10. VANCOMYCIN [Suspect]
     Active Substance: VANCOMYCIN
     Indication: Pneumonia
     Dosage: UNK (3 WEEKS)
  11. VANCOMYCIN [Suspect]
     Active Substance: VANCOMYCIN
     Indication: Cough
  12. VANCOMYCIN [Suspect]
     Active Substance: VANCOMYCIN
     Indication: Pyrexia

REACTIONS (1)
  - Drug ineffective [Fatal]
